FAERS Safety Report 7048416-1 (Version None)
Quarter: 2010Q4

REPORT INFORMATION
  Report Type: 
  Country: None (occurrence: None)
  Receive Date: 20101015
  Receipt Date: 20101015
  Transmission Date: 20110411
  Serious: Yes (Hospitalization, Other)
  Sender: FDA-Public Use
  Company Number: None

PATIENT
  Sex: Female

DRUGS (5)
  1. OMNIPRED [Suspect]
  2. AZOPT [Suspect]
  3. SYSTANE [Suspect]
  4. VIGAMOX [Suspect]
  5. NEVANAC [Suspect]

REACTIONS (4)
  - ACCIDENTAL EXPOSURE [None]
  - MEDICATION ERROR [None]
  - PRODUCT PACKAGING ISSUE [None]
  - WRONG DRUG ADMINISTERED [None]
